FAERS Safety Report 22036067 (Version 4)
Quarter: 2023Q1

REPORT INFORMATION
  Report Type: Spontaneous
  Country: GR (occurrence: GR)
  Receive Date: 20230224
  Receipt Date: 20230326
  Transmission Date: 20230417
  Serious: Yes (Other)
  Sender: FDA-Public Use
  Company Number: GR-ALXN-A202302414

PATIENT
  Age: 8 Year
  Sex: Male
  Weight: 26 kg

DRUGS (3)
  1. SOLIRIS [Suspect]
     Active Substance: ECULIZUMAB
     Indication: Atypical haemolytic uraemic syndrome
     Dosage: 600 MG, Q2W
     Route: 041
     Dates: start: 20221025, end: 20230131
  2. SOLIRIS [Suspect]
     Active Substance: ECULIZUMAB
     Dosage: 600 MG, Q2W
     Route: 041
     Dates: start: 20230314
  3. AMOXYCILLIN                        /00249601/ [Concomitant]
     Indication: Prophylactic chemotherapy
     Dosage: 250 MG, BID
     Route: 048

REACTIONS (1)
  - Transaminases increased [Recovered/Resolved]
